FAERS Safety Report 8206883-1 (Version None)
Quarter: 2012Q1

REPORT INFORMATION
  Report Type: 
  Country: None (occurrence: None)
  Receive Date: 20120312
  Receipt Date: 20120307
  Transmission Date: 20120608
  Serious: No
  Sender: FDA-Public Use
  Company Number: USA/USA/12-0022761

PATIENT
  Age: 53 Year
  Sex: Female

DRUGS (5)
  1. CALCIUM CARBONATE [Concomitant]
  2. LANSOPRAZOLE [Suspect]
     Indication: GASTROOESOPHAGEAL REFLUX DISEASE
     Dosage: 30 MG, 2 IN 1 D, ORAL
     Route: 048
     Dates: start: 20111201, end: 20120201
  3. OMEPRAZOLE [Suspect]
     Indication: GASTROOESOPHAGEAL REFLUX DISEASE
     Dosage: 20 MG, 2 IN 1 D, ORAL
     Route: 048
     Dates: start: 20111101, end: 20111101
  4. LEVAQUIN [Suspect]
     Indication: SINUSITIS
     Dosage: 1 DOSAGE FORMS, 1 D, ORAL
     Route: 048
     Dates: start: 20111218, end: 20111220
  5. IRON (IRON) [Concomitant]

REACTIONS (10)
  - OROPHARYNGEAL PAIN [None]
  - EPISTAXIS [None]
  - SINUSITIS [None]
  - OESOPHAGEAL DISCOMFORT [None]
  - DRUG INEFFECTIVE [None]
  - PRODUCT QUALITY ISSUE [None]
  - WEIGHT DECREASED [None]
  - OVERGROWTH BACTERIAL [None]
  - ARTHROPATHY [None]
  - LACTOSE INTOLERANCE [None]
